FAERS Safety Report 9520458 (Version 1)
Quarter: 2013Q3

REPORT INFORMATION
  Report Type: Report from Study
  Country: US (occurrence: US)
  Receive Date: 20130912
  Receipt Date: 20130912
  Transmission Date: 20140515
  Serious: Yes (Other)
  Sender: FDA-Public Use
  Company Number: PHEH2012US026042

PATIENT
  Age: 82 Year
  Sex: Female

DRUGS (2)
  1. GLEEVEC [Suspect]
     Indication: CHRONIC MYELOID LEUKAEMIA
     Dosage: 400 MG, DAILY
     Route: 048
     Dates: start: 2010
  2. GLEEVEC [Suspect]
     Dosage: 300 MG, EVERY OTHER DAY
     Route: 048

REACTIONS (2)
  - Splenomegaly [Recovering/Resolving]
  - Liver disorder [Recovering/Resolving]
